FAERS Safety Report 8157710 (Version 3)
Quarter: 2013Q1

REPORT INFORMATION
  Report Type: Spontaneous
  Country: US (occurrence: US)
  Receive Date: 20110927
  Receipt Date: 20130304
  Transmission Date: 20140127
  Serious: Yes (Other)
  Sender: FDA-Public Use
  Company Number: US-JNJFOC-20110711894

PATIENT
  Sex: Male

DRUGS (8)
  1. LEVAQUIN [Suspect]
     Indication: BRONCHITIS
     Route: 048
  2. LEVAQUIN [Suspect]
     Indication: SINUSITIS
     Route: 048
  3. PREDNISONE [Suspect]
     Indication: BRONCHITIS
     Route: 048
  4. PREDNISONE [Suspect]
     Indication: SINUS DISORDER
     Route: 048
  5. FLUTICASONE [Suspect]
     Indication: BRONCHITIS
     Route: 045
  6. FLUTICASONE [Suspect]
     Indication: SINUS DISORDER
     Route: 045
  7. CLARITIN D [Concomitant]
     Indication: BRONCHITIS
     Route: 065
  8. CLARITIN D [Concomitant]
     Indication: SINUS DISORDER
     Route: 065

REACTIONS (7)
  - Rotator cuff syndrome [Unknown]
  - Rotator cuff syndrome [Unknown]
  - Tendonitis [Unknown]
  - Post-traumatic stress disorder [Not Recovered/Not Resolved]
  - Anxiety [Not Recovered/Not Resolved]
  - Depression [Not Recovered/Not Resolved]
  - Epicondylitis [Recovering/Resolving]
